FAERS Safety Report 24185973 (Version 1)
Quarter: 2024Q3

REPORT INFORMATION
  Report Type: Spontaneous
  Country: CN (occurrence: CN)
  Receive Date: 20240807
  Receipt Date: 20240807
  Transmission Date: 20241016
  Serious: Yes (Hospitalization, Other)
  Sender: BEIGENE
  Company Number: CN-BEIGENE-BGN-2024-011972

PATIENT

DRUGS (3)
  1. TISLELIZUMAB [Suspect]
     Active Substance: TISLELIZUMAB
     Indication: Lung neoplasm malignant
     Dosage: 200 MILLIGRAM, Q3WK
     Route: 041
     Dates: start: 20240524
  2. CARBOPLATIN [Suspect]
     Active Substance: CARBOPLATIN
     Indication: Lung neoplasm malignant
     Dosage: 600 MILLIGRAM, Q3WK
     Route: 041
     Dates: start: 20240524
  3. PACLITAXEL [Suspect]
     Active Substance: PACLITAXEL
     Indication: Lung neoplasm malignant
     Dosage: 210 MILLIGRAM, Q3WK
     Route: 041
     Dates: start: 20240524

REACTIONS (2)
  - White blood cell count decreased [Recovering/Resolving]
  - Neutrophil count decreased [Recovering/Resolving]

NARRATIVE: CASE EVENT DATE: 20240604
